FAERS Safety Report 18576929 (Version 1)
Quarter: 2020Q4

REPORT INFORMATION
  Report Type: Spontaneous
  Country: FR (occurrence: FR)
  Receive Date: 20201204
  Receipt Date: 20201204
  Transmission Date: 20210114
  Serious: Yes (Life-Threatening, Other)
  Sender: FDA-Public Use
  Company Number: FR-AUROBINDO-AUR-APL-2020-059411

PATIENT
  Age: 15 Year
  Sex: Male
  Weight: 38.5 kg

DRUGS (1)
  1. OXYCODONE [Suspect]
     Active Substance: OXYCODONE
     Indication: PRODUCT USED FOR UNKNOWN INDICATION
     Dosage: UNK
     Route: 048
     Dates: start: 20201113, end: 20201113

REACTIONS (5)
  - Toxicity to various agents [Recovered/Resolved]
  - Miosis [Recovered/Resolved]
  - Bradypnoea [Recovered/Resolved]
  - Coma [Recovered/Resolved]
  - Vomiting [Recovered/Resolved]

NARRATIVE: CASE EVENT DATE: 20201114
